FAERS Safety Report 4314651-6 (Version None)
Quarter: 2004Q1

REPORT INFORMATION
  Report Type: 
  Country: None (occurrence: None)
  Receive Date: 20040308
  Receipt Date: 20040223
  Transmission Date: 20041129
  Serious: Yes (Life-Threatening, Other)
  Sender: FDA-Public Use
  Company Number: 2003EU007309

PATIENT
  Age: 22 Year
  Sex: Female
  Weight: 65 kg

DRUGS (3)
  1. TACROLIMUS CAPSULES(TACROLIMUS) TACROLIMUS CAPSULES(TACROLIMUS) CAPSUL [Suspect]
     Dosage: 10.00 MG, ORAL
     Route: 048
     Dates: start: 20020822
  2. JOCASIN(JOSAMYCIN) [Suspect]
     Dosage: SEE IMAGE
     Route: 048
  3. CELLCEPT [Concomitant]

REACTIONS (5)
  - BLOOD CREATININE INCREASED [None]
  - DRUG INTERACTION [None]
  - HEADACHE [None]
  - PAIN IN EXTREMITY [None]
  - VOMITING [None]
